FAERS Safety Report 6438436 (Version 2)
Quarter: 2013Q1

REPORT INFORMATION
  Report Type: Spontaneous
  Country: US (occurrence: None)
  Receive Date: 20070926
  Receipt Date: 20130117
  Transmission Date: 20140127
  Serious: Yes (Hospitalization, Other)
  Sender: FDA-Public Use
  Company Number: 2007US-09923

PATIENT
  Age: 54 Year
  Sex: Male

DRUGS (2)
  1. LORAZEPAM [Suspect]
     Indication: PRODUCT USED FOR UNKNOWN INDICATION
     Dosage: IV DRIP
     Route: 041
  2. THIAMINE (THIAMINE) [Concomitant]

REACTIONS (10)
  - Metabolic acidosis [None]
  - Renal failure acute [None]
  - Blood osmolarity increased [None]
  - Haematotoxicity [None]
  - Haematoma [None]
  - Alcohol withdrawal syndrome [None]
  - Blood sodium decreased [None]
  - Blood chloride decreased [None]
  - Blood lactic acid increased [None]
  - Haemodialysis [None]
